FAERS Safety Report 5360487-7 (Version None)
Quarter: 2007Q2

REPORT INFORMATION
  Report Type: 
  Country: None (occurrence: None)
  Receive Date: 20070618
  Receipt Date: 20070613
  Transmission Date: 20071010
  Serious: Yes (Hospitalization)
  Sender: FDA-Public Use
  Company Number: B0454653A

PATIENT
  Age: 77 Year
  Sex: Male

DRUGS (6)
  1. VALTREX [Suspect]
     Indication: HERPES ZOSTER
     Dosage: 1000MG PER DAY
     Route: 048
     Dates: start: 20061220, end: 20061222
  2. TAGAMET [Concomitant]
     Route: 065
  3. NU-LOTAN [Concomitant]
     Route: 048
  4. ANPLAG [Concomitant]
     Route: 048
  5. SELBEX [Concomitant]
     Route: 048
  6. ADALAT [Concomitant]
     Route: 048

REACTIONS (3)
  - AGITATION [None]
  - ENCEPHALOPATHY [None]
  - HALLUCINATION [None]
